APPROVED DRUG PRODUCT: AMPHOTEC
Active Ingredient: AMPHOTERICIN B
Strength: 50MG/VIAL
Dosage Form/Route: INJECTABLE, LIPID COMPLEX;INJECTION
Application: N050729 | Product #001
Applicant: ALKOPHARMA USA INC
Approved: Nov 22, 1996 | RLD: No | RS: No | Type: DISCN